FAERS Safety Report 20893166 (Version 1)
Quarter: 2022Q2

REPORT INFORMATION
  Report Type: Spontaneous
  Country: CN (occurrence: CN)
  Receive Date: 20220531
  Receipt Date: 20220531
  Transmission Date: 20220721
  Serious: Yes (Hospitalization)
  Sender: FDA-Public Use
  Company Number: None

PATIENT
  Age: 64 Year
  Sex: Male
  Weight: 47 kg

DRUGS (3)
  1. OLANZAPINE [Suspect]
     Active Substance: OLANZAPINE
     Indication: Schizophrenia
     Dosage: 10MG,QD
     Route: 048
     Dates: start: 20220308, end: 20220521
  2. CLOZAPINE [Suspect]
     Active Substance: CLOZAPINE
     Indication: Schizophrenia
     Dosage: 25MG,BID
     Route: 048
     Dates: start: 20220308, end: 20220324
  3. TRIHEXYPHENIDYL HYDROCHLORIDE [Concomitant]
     Active Substance: TRIHEXYPHENIDYL HYDROCHLORIDE
     Indication: Schizophrenia
     Dosage: 2MG,BID
     Route: 048
     Dates: start: 20220308, end: 20220521

REACTIONS (1)
  - Total bile acids increased [Recovering/Resolving]

NARRATIVE: CASE EVENT DATE: 20220318
